FAERS Safety Report 7763817-1 (Version None)
Quarter: 2011Q3

REPORT INFORMATION
  Report Type: 
  Country: None (occurrence: None)
  Receive Date: 20110921
  Receipt Date: 20100810
  Transmission Date: 20111222
  Serious: No
  Sender: FDA-Public Use
  Company Number: US-BAYER-201033035NA

PATIENT
  Sex: Female

DRUGS (1)
  1. MIRENA [Suspect]
     Dosage: 20 MCG/24HR, CONT
     Route: 015
     Dates: start: 20100714

REACTIONS (4)
  - POST PROCEDURAL HAEMORRHAGE [None]
  - VAGINAL DISCHARGE [None]
  - ABDOMINAL PAIN LOWER [None]
  - MEDICAL DEVICE COMPLICATION [None]
